FAERS Safety Report 7102632-9 (Version None)
Quarter: 2010Q4

REPORT INFORMATION
  Report Type: 
  Country: None (occurrence: None)
  Receive Date: 20101115
  Receipt Date: 20101105
  Transmission Date: 20110411
  Serious: Yes (Hospitalization)
  Sender: FDA-Public Use
  Company Number: B0683933A

PATIENT
  Age: 71 Year
  Sex: Female
  Weight: 75 kg

DRUGS (18)
  1. MELPHALAN HYDROCHLORIDE [Suspect]
     Indication: MULTIPLE MYELOMA
     Dosage: 22MG PER DAY
     Dates: start: 20100827
  2. THALIDOMIDE [Suspect]
     Indication: MULTIPLE MYELOMA
     Dosage: 200MG PER DAY
     Route: 048
     Dates: start: 20100827
  3. PREDNISOLONE [Suspect]
     Indication: MULTIPLE MYELOMA
     Dates: start: 20100827
  4. ACETYLSALICYLIC ACID SRT [Concomitant]
     Indication: THROMBOSIS PROPHYLAXIS
     Dosage: 100MG PER DAY
     Route: 048
  5. LISINOPRIL [Concomitant]
     Indication: HYPERTENSION
     Route: 048
  6. SIMVASTATIN [Concomitant]
     Route: 048
     Dates: start: 20040101
  7. AMIODARONE HCL [Concomitant]
     Route: 048
     Dates: start: 20040101
  8. METOPROLOL [Concomitant]
     Indication: HYPERTENSION
     Dosage: 95MG PER DAY
     Route: 048
     Dates: start: 20040101
  9. TORASEMIDE [Concomitant]
     Indication: HYPERTENSION
     Dosage: 10MG PER DAY
     Route: 048
     Dates: start: 20100719
  10. CIPRAMIL [Concomitant]
     Indication: DEPRESSION
     Dosage: 20MG PER DAY
     Route: 048
     Dates: start: 20100301
  11. VIANI [Concomitant]
     Route: 048
     Dates: start: 20100501
  12. FERRLECIT [Concomitant]
     Dosage: 2MG PER DAY
     Route: 048
     Dates: start: 20090501
  13. ESTRADIOL [Concomitant]
     Indication: HORMONE REPLACEMENT THERAPY
     Route: 062
  14. LENDORMIN [Concomitant]
     Indication: SLEEP DISORDER
     Route: 048
     Dates: start: 20100817, end: 20100828
  15. ESIDRIX [Concomitant]
     Indication: HYPERTENSION
     Dosage: 25MG PER DAY
     Route: 048
     Dates: start: 20100818, end: 20100819
  16. KONAKION [Concomitant]
     Dosage: 1AMP PER DAY
     Route: 048
     Dates: start: 20100818, end: 20100819
  17. PANTOPRAZOLE SODIUM [Concomitant]
     Indication: PROPHYLAXIS
     Dosage: 40MG PER DAY
     Route: 048
     Dates: start: 20100827
  18. VOLTAREN [Concomitant]
     Route: 048
     Dates: start: 20101021

REACTIONS (1)
  - PNEUMONIA [None]
